FAERS Safety Report 13407100 (Version 7)
Quarter: 2017Q3

REPORT INFORMATION
  Report Type: Spontaneous
  Country: US (occurrence: US)
  Receive Date: 20170405
  Receipt Date: 20170823
  Transmission Date: 20171127
  Serious: Yes (Hospitalization, Other)
  Sender: FDA-Public Use
  Company Number: US-ALKERMES INC.-ALK-2017-001281

PATIENT
  Age: 29 Year
  Sex: Male
  Weight: 86.62 kg

DRUGS (7)
  1. THORAZINE [Concomitant]
     Active Substance: CHLORPROMAZINE
     Indication: PRODUCT USED FOR UNKNOWN INDICATION
     Dosage: 10 MG, BID PRN
  2. LAMICTAL [Concomitant]
     Active Substance: LAMOTRIGINE
     Indication: PRODUCT USED FOR UNKNOWN INDICATION
     Dosage: 200 MG, UNK
  3. ARISTADA [Suspect]
     Active Substance: ARIPIPRAZOLE LAUROXIL
     Indication: DELUSION
  4. DEPAKOTE [Concomitant]
     Active Substance: DIVALPROEX SODIUM
     Indication: PRODUCT USED FOR UNKNOWN INDICATION
     Dosage: 1000 MG, HS
  5. CLONAZEPAM. [Concomitant]
     Active Substance: CLONAZEPAM
     Indication: PRODUCT USED FOR UNKNOWN INDICATION
     Dosage: 1/2 TO 1 TABLET, ORAL, DAILY, PRN
     Route: 048
  6. ZYPREXA [Concomitant]
     Active Substance: OLANZAPINE
     Indication: DELUSION
     Dosage: 5 MG, PRN
  7. ARISTADA [Suspect]
     Active Substance: ARIPIPRAZOLE LAUROXIL
     Indication: SCHIZOPHRENIA
     Dosage: 882 MG, QMO
     Route: 030
     Dates: start: 20170105, end: 2017

REACTIONS (14)
  - Suicidal ideation [Recovered/Resolved]
  - Memory impairment [Unknown]
  - Therapeutic response shortened [Recovered/Resolved]
  - Hallucination [Unknown]
  - Agitation [Recovered/Resolved]
  - Conversion disorder [Unknown]
  - Weight increased [Not Recovered/Not Resolved]
  - Anger [Recovering/Resolving]
  - Dissociative disorder [Unknown]
  - Drug use disorder [Unknown]
  - Hallucination, auditory [Recovered/Resolved]
  - Alcohol poisoning [Recovering/Resolving]
  - Homicidal ideation [Recovered/Resolved]
  - Antisocial personality disorder [Unknown]

NARRATIVE: CASE EVENT DATE: 2017
